FAERS Safety Report 10206320 (Version 1)
Quarter: 2014Q2

REPORT INFORMATION
  Report Type: Spontaneous
  Country: IT (occurrence: IT)
  Receive Date: 20140530
  Receipt Date: 20140530
  Transmission Date: 20141212
  Serious: Yes (Disabling)
  Sender: FDA-Public Use
  Company Number: PHHY2014IT065500

PATIENT
  Age: 78 Year
  Sex: Male

DRUGS (11)
  1. ZOMETA [Suspect]
     Indication: PROSTATE CANCER METASTATIC
     Dosage: 4 MG, MONTHLY
     Route: 042
     Dates: start: 20120827, end: 20130312
  2. ZOMETA [Suspect]
     Dosage: 4 MG, MONTHLY
     Route: 042
     Dates: start: 201306, end: 20131015
  3. LANSOPRAZOLE [Concomitant]
     Dosage: 30 MG
  4. IRBESARTAN [Concomitant]
     Dosage: UNK UKN, UNK
  5. CARDIOASPIRIN [Concomitant]
     Dosage: 100 MG
  6. TRIATEC [Concomitant]
     Dosage: 5 MG
  7. NOVONORM [Concomitant]
     Dosage: UNK UKN, UNK
  8. DELTACORTENE [Concomitant]
     Dosage: 10 MG
  9. ENDOXAN [Concomitant]
     Dosage: 50 MG
  10. ENANTONE [Concomitant]
     Dosage: 11.25 MG
  11. DILATREND [Concomitant]
     Dosage: UNK UKN, UNK

REACTIONS (3)
  - Osteonecrosis of jaw [Not Recovered/Not Resolved]
  - Exposed bone in jaw [Unknown]
  - Pain [Unknown]
